FAERS Safety Report 9465461 (Version 4)
Quarter: 2014Q1

REPORT INFORMATION
  Report Type: Report from Study
  Country: CA (occurrence: CA)
  Receive Date: 20130820
  Receipt Date: 20140307
  Transmission Date: 20141002
  Serious: Yes (Other)
  Sender: FDA-Public Use
  Company Number: CA-ROCHE-1263303

PATIENT
  Age: 72 Year
  Sex: Female
  Weight: 70.3 kg

DRUGS (14)
  1. RITUXAN [Suspect]
     Indication: LUPUS NEPHRITIS
     Dosage: DAY 1 AND 8
     Route: 042
     Dates: start: 20101209
  2. RITUXAN [Suspect]
     Dosage: DAY 1 AND 15  IN AUG/2013 RECEIVED THE LAST COURSE AND ON 13-FEB-2014,RECEIVED PREVIOUS DOSE
     Route: 042
     Dates: start: 20110908
  3. VITAMIN B12 [Concomitant]
  4. ACETAMINOPHEN [Concomitant]
     Indication: PREMEDICATION
     Route: 048
     Dates: start: 20101209
  5. PREDNISONE [Concomitant]
     Indication: PREMEDICATION
     Route: 048
     Dates: start: 20101208
  6. OMEPRAZOLE [Concomitant]
  7. NADOLOL [Concomitant]
     Indication: HYPERTENSION
     Route: 048
  8. AZATHIOPRINE [Concomitant]
     Route: 048
     Dates: start: 200806
  9. CITALOPRAM [Concomitant]
     Indication: DEPRESSION
     Route: 048
  10. ASPIRIN [Concomitant]
     Route: 065
  11. DIPHENHYDRAMINE HCL [Concomitant]
     Route: 048
     Dates: start: 20101209
  12. CO ETIDROCAL [Concomitant]
  13. DIDROCAL [Concomitant]
     Indication: OSTEOPOROSIS
     Route: 048
  14. TECTA [Concomitant]
     Indication: PEPTIC ULCER
     Route: 048
     Dates: start: 20130813

REACTIONS (12)
  - Rheumatoid arthritis [Not Recovered/Not Resolved]
  - Discomfort [Not Recovered/Not Resolved]
  - Hypergammaglobulinaemia [Recovering/Resolving]
  - Fall [Unknown]
  - Meniscus injury [Not Recovered/Not Resolved]
  - Headache [Not Recovered/Not Resolved]
  - Osteoarthritis [Not Recovered/Not Resolved]
  - Blood pressure increased [Not Recovered/Not Resolved]
  - Stress [Not Recovered/Not Resolved]
  - Blood disorder [Recovering/Resolving]
  - Off label use [Unknown]
  - Blood immunoglobulin G increased [Unknown]
